FAERS Safety Report 12736051 (Version 2)
Quarter: 2016Q4

REPORT INFORMATION
  Report Type: Spontaneous
  Country: JP (occurrence: JP)
  Receive Date: 20160913
  Receipt Date: 20161019
  Transmission Date: 20170207
  Serious: Yes (Other)
  Sender: FDA-Public Use
  Company Number: JP-ROCHE-1829313

PATIENT
  Sex: Male

DRUGS (2)
  1. XOLAIR [Suspect]
     Active Substance: OMALIZUMAB
     Dosage: 450 MG, BIW
     Route: 058
     Dates: start: 20160810, end: 20160810
  2. XOLAIR [Suspect]
     Active Substance: OMALIZUMAB
     Indication: ASTHMA
     Dosage: 450 MG, BIW
     Route: 058
     Dates: start: 20160727, end: 20160727

REACTIONS (6)
  - Eosinophilic granulomatosis with polyangiitis [Recovered/Resolved]
  - Eosinophilic pneumonia [Recovered/Resolved]
  - Blood immunoglobulin E increased [Unknown]
  - Eosinophil count increased [Unknown]
  - White blood cell count increased [Unknown]
  - Pyrexia [Unknown]

NARRATIVE: CASE EVENT DATE: 20160810
